FAERS Safety Report 9788708 (Version 1)
Quarter: 2013Q4

REPORT INFORMATION
  Report Type: Spontaneous
  Country: DK (occurrence: FR)
  Receive Date: 20131230
  Receipt Date: 20131230
  Transmission Date: 20140711
  Serious: Yes (Other)
  Sender: FDA-Public Use
  Company Number: FR-FRI-1000052461

PATIENT
  Age: 64 Year
  Sex: Female

DRUGS (4)
  1. ESCITALOPRAM [Suspect]
     Indication: DEPRESSION
     Dosage: OVERDOSE WITH 40 MG DAILY OF ESCITALOPRAM
     Route: 048
     Dates: start: 20131101
  2. NOCTAMIDE [Suspect]
     Indication: DEPRESSION
     Dosage: 2 MG
     Route: 048
     Dates: start: 20131101
  3. XANAX [Suspect]
     Indication: DEPRESSION
     Dosage: 1.5 MG
     Route: 048
     Dates: start: 20131101
  4. LOVENOX [Suspect]
     Indication: PHLEBITIS
     Dosage: NOT SPECIFIED
     Route: 048
     Dates: start: 20131118

REACTIONS (2)
  - Neutropenia [Not Recovered/Not Resolved]
  - Overdose [Not Recovered/Not Resolved]
